FAERS Safety Report 7518621-6 (Version None)
Quarter: 2011Q2

REPORT INFORMATION
  Report Type: 
  Country: None (occurrence: None)
  Receive Date: 20110602
  Receipt Date: 20110523
  Transmission Date: 20111010
  Serious: Yes (Hospitalization)
  Sender: FDA-Public Use
  Company Number: JP-SANOFI-AVENTIS-2011SA033576

PATIENT
  Age: 25 Year
  Sex: Female

DRUGS (7)
  1. BENZALIN [Concomitant]
     Route: 048
  2. PYRETHIA [Concomitant]
     Route: 048
  3. SEROQUEL [Suspect]
     Indication: SCHIZOPHRENIA
     Route: 048
  4. ZOLPIDEM [Suspect]
     Dosage: LARGE DOSE (NOS).
     Route: 048
  5. PL GRAN. [Concomitant]
     Route: 065
  6. DORAL [Concomitant]
     Route: 048
  7. BISACODYL [Concomitant]
     Route: 048

REACTIONS (2)
  - PNEUMONIA ASPIRATION [None]
  - MULTIPLE DRUG OVERDOSE INTENTIONAL [None]
